FAERS Safety Report 7051832-5 (Version None)
Quarter: 2010Q4

REPORT INFORMATION
  Report Type: 
  Country: None (occurrence: None)
  Receive Date: 20101019
  Receipt Date: 20101012
  Transmission Date: 20110411
  Serious: Yes (Other)
  Sender: FDA-Public Use
  Company Number: US-PURDUE-USA-2010-0049163

PATIENT
  Sex: Female

DRUGS (1)
  1. OXYCONTIN [Suspect]
     Indication: PRODUCT USED FOR UNKNOWN INDICATION
     Dosage: UNK
     Dates: start: 19970101

REACTIONS (7)
  - AUTOIMMUNE THYROIDITIS [None]
  - BLOOD THYROID STIMULATING HORMONE DECREASED [None]
  - BREAST CANCER [None]
  - CARDIAC ABLATION [None]
  - FAECAL INCONTINENCE [None]
  - ROAD TRAFFIC ACCIDENT [None]
  - URINARY INCONTINENCE [None]
